FAERS Safety Report 8594404-3 (Version None)
Quarter: 2012Q3

REPORT INFORMATION
  Report Type: 
  Country: None (occurrence: None)
  Receive Date: 20120815
  Receipt Date: 20120806
  Transmission Date: 20120928
  Serious: No
  Sender: FDA-Public Use
  Company Number: US-BIOGENIDEC-2012BI030487

PATIENT
  Age: 48 Year
  Sex: Female

DRUGS (1)
  1. TYSABRI [Suspect]
     Indication: MULTIPLE SCLEROSIS
     Route: 042
     Dates: start: 20110915, end: 20111122

REACTIONS (7)
  - EATING DISORDER [None]
  - PARAESTHESIA [None]
  - VISUAL IMPAIRMENT [None]
  - DIZZINESS [None]
  - DYSPHAGIA [None]
  - MUSCULOSKELETAL DISORDER [None]
  - POOR VENOUS ACCESS [None]
